FAERS Safety Report 7541290-6 (Version None)
Quarter: 2011Q2

REPORT INFORMATION
  Report Type: 
  Country: None (occurrence: None)
  Receive Date: 20110610
  Receipt Date: 20110606
  Transmission Date: 20111010
  Serious: Yes (Hospitalization, Other)
  Sender: FDA-Public Use
  Company Number: US-RB-028671-11

PATIENT
  Sex: Female

DRUGS (1)
  1. SUBOXONE [Suspect]
     Indication: DRUG DEPENDENCE
     Dosage: DOSING DURING PREGNANCY IS UNKNOWN
     Route: 064
     Dates: start: 20091228, end: 20100921

REACTIONS (4)
  - GASTROOESOPHAGEAL REFLUX DISEASE [None]
  - DRUG EXPOSURE DURING PREGNANCY [None]
  - MULTIPLE ALLERGIES [None]
  - INFANTILE APNOEIC ATTACK [None]
